FAERS Safety Report 9289147 (Version 1)
Quarter: 2013Q2

REPORT INFORMATION
  Report Type: Spontaneous
  Country: US (occurrence: US)
  Receive Date: 20130514
  Receipt Date: 20130514
  Transmission Date: 20140414
  Serious: Yes (Other)
  Sender: FDA-Public Use
  Company Number: US-ELI_LILLY_AND_COMPANY-US201305001126

PATIENT
  Sex: Female

DRUGS (1)
  1. HUMATROPE [Suspect]

REACTIONS (3)
  - Haemorrhage [Unknown]
  - Ovarian failure [Unknown]
  - Haemoglobin decreased [Unknown]
